FAERS Safety Report 19704945 (Version 1)
Quarter: 2021Q3

REPORT INFORMATION
  Report Type: Spontaneous
  Country: US (occurrence: US)
  Receive Date: 20210816
  Receipt Date: 20210816
  Transmission Date: 20211014
  Serious: Yes (Hospitalization)
  Sender: FDA-Public Use
  Company Number: US-MYLANLABS-2021M1050741

PATIENT
  Sex: Female

DRUGS (2)
  1. RIFAMPICIN [Suspect]
     Active Substance: RIFAMPIN
     Indication: PROPHYLAXIS
     Dosage: UNK (CARDIAC IMPLANT POUCH)
  2. MINOCYCLINE [Suspect]
     Active Substance: MINOCYCLINE HYDROCHLORIDE
     Indication: ANTIBIOTIC PROPHYLAXIS
     Dosage: UNK, CARDIAC IMPLANT POUCH

REACTIONS (2)
  - Implant site infection [Recovered/Resolved]
  - Hypersensitivity [Recovered/Resolved]
